FAERS Safety Report 5885087-1 (Version None)
Quarter: 2008Q3

REPORT INFORMATION
  Report Type: 
  Country: None (occurrence: None)
  Receive Date: 20080916
  Receipt Date: 20080903
  Transmission Date: 20090109
  Serious: Yes (Hospitalization)
  Sender: FDA-Public Use
  Company Number: US-BAYER-200717316NA

PATIENT
  Sex: Female

DRUGS (1)
  1. BETASERON [Suspect]

REACTIONS (1)
  - HYPERAESTHESIA [None]
